FAERS Safety Report 13073178 (Version 2)
Quarter: 2017Q1

REPORT INFORMATION
  Report Type: Spontaneous
  Country: US (occurrence: US)
  Receive Date: 20161229
  Receipt Date: 20170111
  Transmission Date: 20170428
  Serious: Yes (Hospitalization)
  Sender: FDA-Public Use
  Company Number: US-ELI_LILLY_AND_COMPANY-US201612009018

PATIENT
  Age: 55 Year
  Sex: Male

DRUGS (7)
  1. HUMULIN R [Suspect]
     Active Substance: INSULIN HUMAN
     Indication: TYPE 2 DIABETES MELLITUS
     Dosage: 60 IU, EACH MORNING
     Route: 065
     Dates: start: 2006
  2. TRULICITY [Suspect]
     Active Substance: DULAGLUTIDE
     Indication: TYPE 2 DIABETES MELLITUS
     Dosage: 0.75 MG, WEEKLY (1/W)
     Route: 065
     Dates: start: 20161130
  3. HUMULIN R [Suspect]
     Active Substance: INSULIN HUMAN
     Dosage: 80 IU, EACH EVENING
     Route: 065
     Dates: start: 2006
  4. HUMULIN R [Suspect]
     Active Substance: INSULIN HUMAN
     Dosage: 80 IU, QD AT LUNCH
     Route: 065
     Dates: start: 2006
  5. HUMULIN R [Suspect]
     Active Substance: INSULIN HUMAN
     Dosage: 80 IU, QD AT LUNCH
     Route: 065
  6. HUMULIN R [Suspect]
     Active Substance: INSULIN HUMAN
     Dosage: 60 IU, EACH MORNING
     Route: 065
  7. HUMULIN R [Suspect]
     Active Substance: INSULIN HUMAN
     Dosage: 80 IU, EACH EVENING
     Route: 065

REACTIONS (2)
  - Renal failure [Unknown]
  - Blood glucose increased [Not Recovered/Not Resolved]

NARRATIVE: CASE EVENT DATE: 2011
